FAERS Safety Report 17124233 (Version 1)
Quarter: 2019Q4

REPORT INFORMATION
  Report Type: Spontaneous
  Country: IT (occurrence: IT)
  Receive Date: 20191206
  Receipt Date: 20191206
  Transmission Date: 20200122
  Serious: Yes (Hospitalization, Other)
  Sender: FDA-Public Use
  Company Number: IT-SA-2019SA334958

PATIENT
  Age: 82 Year
  Sex: Male

DRUGS (3)
  1. INDAPAMIDE. [Suspect]
     Active Substance: INDAPAMIDE
     Indication: HYPERTENSION
     Dosage: 2.5 MG, QD
     Route: 065
  2. INDAPAMIDE. [Suspect]
     Active Substance: INDAPAMIDE
     Dosage: 5 MG/DAY
     Route: 065
  3. VERAPAMIL [Concomitant]
     Active Substance: VERAPAMIL HYDROCHLORIDE
     Indication: MYOCARDIAL FIBROSIS
     Dosage: 160 MG, QD
     Route: 065

REACTIONS (11)
  - Electrocardiogram QT prolonged [Recovered/Resolved]
  - Muscle injury [Recovered/Resolved]
  - Bundle branch block right [Recovered/Resolved]
  - Myoglobin blood present [Recovered/Resolved]
  - Hyporeflexia [Recovered/Resolved]
  - Metabolic alkalosis [Recovered/Resolved]
  - Bundle branch block left [Recovered/Resolved]
  - Renal impairment [Recovered/Resolved]
  - Hypokalaemia [Recovered/Resolved]
  - Enzyme activity increased [Recovered/Resolved]
  - Asthenia [Recovered/Resolved]
